FAERS Safety Report 6504787-3 (Version None)
Quarter: 2009Q4

REPORT INFORMATION
  Report Type: 
  Country: None (occurrence: None)
  Receive Date: 20091218
  Receipt Date: 20091210
  Transmission Date: 20100525
  Serious: Yes (Hospitalization, Other)
  Sender: FDA-Public Use
  Company Number: CA-ASTRAZENECA-2009SE28496

PATIENT
  Age: 59 Year
  Sex: Female

DRUGS (10)
  1. LOSEC [Suspect]
     Route: 048
  2. LOSEC [Suspect]
     Route: 048
  3. LOSEC [Suspect]
     Route: 048
  4. PULMICORT [Concomitant]
     Indication: COUGH
     Dosage: 100 MCG 1 PUFF AS REQUIRED
     Route: 055
  5. PULMICORT [Concomitant]
     Indication: NASOPHARYNGITIS
     Dosage: 100 MCG 1 PUFF AS REQUIRED
     Route: 055
  6. EXEMESTANE [Concomitant]
     Indication: BREAST CANCER
  7. AMITRIPTYLINE [Concomitant]
     Indication: SLEEP DISORDER
  8. ALBUTEROL [Concomitant]
  9. ATIVAN [Concomitant]
  10. VALCICLOVIR [Concomitant]

REACTIONS (11)
  - ANAEMIA [None]
  - BREAST CANCER [None]
  - DRUG INEFFECTIVE [None]
  - GASTRITIS EROSIVE [None]
  - GASTROOESOPHAGEAL REFLUX DISEASE [None]
  - HEART RATE INCREASED [None]
  - HYSTERECTOMY [None]
  - MALIGNANT BREAST LUMP REMOVAL [None]
  - MENINGIOMA [None]
  - MENINGIOMA SURGERY [None]
  - SLEEP DISORDER [None]
